FAERS Safety Report 5452667-7 (Version None)
Quarter: 2007Q3

REPORT INFORMATION
  Report Type: 
  Country: None (occurrence: None)
  Receive Date: 20070914
  Receipt Date: 20070906
  Transmission Date: 20080115
  Serious: Yes (Hospitalization, Disabling)
  Sender: FDA-Public Use
  Company Number: BR-AVENTIS-200718282GDDC

PATIENT
  Sex: Male
  Weight: 55 kg

DRUGS (3)
  1. LANTUS [Suspect]
     Dosage: DOSE: UNK
     Route: 058
     Dates: start: 20040101
  2. LANTUS [Suspect]
     Route: 058
     Dates: start: 20070901
  3. OPTIPEN (INSULIN PUMP) [Suspect]
     Dates: start: 20040101

REACTIONS (4)
  - BLOOD PRESSURE INCREASED [None]
  - GAIT DISTURBANCE [None]
  - HYPERGLYCAEMIA [None]
  - SPEECH DISORDER [None]
